FAERS Safety Report 5954935-9 (Version None)
Quarter: 2008Q4

REPORT INFORMATION
  Report Type: 
  Country: None (occurrence: None)
  Receive Date: 20081117
  Receipt Date: 20081017
  Transmission Date: 20090506
  Serious: No
  Sender: FDA-Public Use
  Company Number: US-BAYER-200834403NA

PATIENT
  Age: 33 Year
  Sex: Female
  Weight: 82 kg

DRUGS (2)
  1. MIRENA [Suspect]
     Indication: CONTRACEPTION
     Route: 015
     Dates: start: 20080909, end: 20080922
  2. TYLENOL (CAPLET) [Concomitant]
     Indication: PAIN
     Dates: start: 20080909, end: 20080910

REACTIONS (4)
  - PROCEDURAL PAIN [None]
  - PRURITUS [None]
  - RASH GENERALISED [None]
  - URTICARIA [None]
